FAERS Safety Report 21679355 (Version 1)
Quarter: 2022Q4

REPORT INFORMATION
  Report Type: Spontaneous
  Country: US (occurrence: US)
  Receive Date: 20221205
  Receipt Date: 20221205
  Transmission Date: 20230113
  Serious: No
  Sender: FDA-Public Use
  Company Number: US-JNJFOC-20221148897

PATIENT
  Age: 1 Decade
  Sex: Male

DRUGS (1)
  1. ACETAMINOPHEN [Suspect]
     Active Substance: ACETAMINOPHEN
     Indication: Analgesic therapy
     Dosage: MOTHER BEGAN USING THE APAP PRODUCTS IN OR AROUND 2014, WHEN SHE WAS PREGNANT WITH HER CHILD.
     Route: 064

REACTIONS (2)
  - Foetal exposure during pregnancy [Unknown]
  - Attention deficit hyperactivity disorder [Unknown]
